FAERS Safety Report 5167125-7 (Version None)
Quarter: 2006Q4

REPORT INFORMATION
  Report Type: 
  Country: None (occurrence: None)
  Receive Date: 20061207
  Receipt Date: 20061130
  Transmission Date: 20070319
  Serious: Yes (Other)
  Sender: FDA-Public Use
  Company Number: 2006JP004711

PATIENT
  Age: 32 Year
  Sex: Female

DRUGS (8)
  1. CEFAMEZIN [Suspect]
     Indication: INFECTION PROPHYLAXIS
     Dosage: 1G FOUR TIMES PER DAY
     Route: 042
     Dates: start: 20060502, end: 20060502
  2. LIDOCAINE [Suspect]
     Route: 008
     Dates: start: 20060502
  3. PROPOFOL [Suspect]
     Route: 042
     Dates: start: 20060502
  4. VECURONIUM BROMIDE [Suspect]
     Route: 042
     Dates: start: 20060502
  5. SEVOFLURANE [Suspect]
     Route: 055
     Dates: start: 20060502
  6. FENTANYL [Suspect]
     Route: 008
     Dates: start: 20060502
  7. NITROUS OXIDE W/ OXYGEN [Concomitant]
     Route: 055
     Dates: start: 20060502
  8. POTACOL-R [Concomitant]
     Route: 065
     Dates: start: 20060502

REACTIONS (4)
  - ANAPHYLACTOID REACTION [None]
  - BLOOD PRESSURE DECREASED [None]
  - RASH [None]
  - URTICARIA [None]
